FAERS Safety Report 6166643-2 (Version None)
Quarter: 2009Q2

REPORT INFORMATION
  Report Type: 
  Country: None (occurrence: None)
  Receive Date: 20090423
  Receipt Date: 20090423
  Transmission Date: 20091009
  Serious: Yes (Other)
  Sender: FDA-Public Use
  Company Number: None

PATIENT
  Age: 85 Year
  Sex: Male
  Weight: 95 kg

DRUGS (11)
  1. LANTUS [Suspect]
     Indication: DIABETES MELLITUS
     Dosage: 45 UNITS AT BEDTIME SL
     Route: 060
     Dates: start: 20090418, end: 20090420
  2. TAMBOCOR [Concomitant]
  3. FLOMAX [Concomitant]
  4. ZOCOR [Concomitant]
  5. MEDROL [Concomitant]
  6. DEPAKOTE [Concomitant]
  7. ZANTAC [Concomitant]
  8. KLONOPIN [Concomitant]
  9. HALDOL [Concomitant]
  10. ZOLOFT [Concomitant]
  11. RISPERDAL [Concomitant]

REACTIONS (1)
  - UNRESPONSIVE TO STIMULI [None]
